FAERS Safety Report 7535675 (Version 1)
Quarter: 2020Q3

REPORT INFORMATION
  Report Type: Spontaneous
  Country: DE (occurrence: DE)
  Receive Date: 20100810
  Receipt Date: 20100810
  Transmission Date: 20201105
  Serious: Yes (Hospitalization)
  Sender: FDA-Public Use
  Company Number: PHHY2010DE49614

PATIENT
  Age: 69 Year
  Sex: Female

DRUGS (7)
  1. IBANDRONIC ACID. [Suspect]
     Active Substance: IBANDRONIC ACID
     Indication: PLASMA CELL MYELOMA
  2. ANAESTHETICS [Concomitant]
  3. CLAVULANATE POTASSIUM [Concomitant]
     Active Substance: CLAVULANATE POTASSIUM
     Dosage: 125 MG, TID
     Route: 048
  4. HEXETIDINE [Concomitant]
     Active Substance: HEXETIDINE
     Dosage: UNK, THREE TIMES A DAY
  5. ZOLEDRONIC ACID [Suspect]
     Active Substance: ZOLEDRONIC ACID
     Indication: PLASMA CELL MYELOMA
  6. AMOXICILLIN. [Concomitant]
     Active Substance: AMOXICILLIN
     Dosage: 500 MG, UNK
  7. IBUPROFEN. [Concomitant]
     Active Substance: IBUPROFEN
     Indication: ANALGESIC THERAPY
     Dosage: 600 MG, TID

REACTIONS (5)
  - Wound closure [Recovered/Resolved]
  - Osteonecrosis of jaw [Recovered/Resolved]
  - Osteotomy [Recovered/Resolved]
  - Bone disorder [Recovered/Resolved]
  - Pain [Recovered/Resolved]
